FAERS Safety Report 17884156 (Version 1)
Quarter: 2020Q2

REPORT INFORMATION
  Report Type: Spontaneous
  Country: US (occurrence: US)
  Receive Date: 20200611
  Receipt Date: 20200611
  Transmission Date: 20200714
  Serious: No
  Sender: FDA-Public Use
  Company Number: None

PATIENT
  Age: 33 Year
  Sex: Male
  Weight: 63.5 kg

DRUGS (2)
  1. LEVOFLOXACIN. [Suspect]
     Active Substance: LEVOFLOXACIN
     Indication: PNEUMONIA
     Dosage: ?          OTHER FREQUENCY:ONCE;?
     Route: 041
  2. BIKTARVY DAILY (HOME MED) [Concomitant]

REACTIONS (5)
  - Hypoxia [None]
  - Hypertension [None]
  - Tachycardia [None]
  - Mental status changes [None]
  - Tachypnoea [None]

NARRATIVE: CASE EVENT DATE: 20191226
